FAERS Safety Report 4376847-7 (Version None)
Quarter: 2004Q2

REPORT INFORMATION
  Report Type: 
  Country: None (occurrence: None)
  Receive Date: 20040609
  Receipt Date: 20040311
  Transmission Date: 20050107
  Serious: Yes (Other)
  Sender: FDA-Public Use
  Company Number: PHEH2003US11491

PATIENT
  Age: 61 Year
  Sex: Male

DRUGS (14)
  1. GLEEVEC [Suspect]
     Indication: GASTROINTESTINAL STROMAL TUMOUR
     Dosage: 400 MG, QD, ORAL
     Route: 048
     Dates: start: 20031029
  2. MOBIC [Concomitant]
  3. METHOTREXATE [Concomitant]
  4. NEURONTIN [Concomitant]
  5. ENBREL ^IMMUNEX^ (ETANERCEPT) [Concomitant]
  6. LASIX [Concomitant]
  7. CARDIZEM CD [Concomitant]
  8. COUMADIN [Concomitant]
  9. TRICOR [Concomitant]
  10. DIGOXIN [Concomitant]
  11. DIOVAN [Concomitant]
  12. PROVENTIL (SALBUTAMOL SULFATE) [Concomitant]
  13. .. [Concomitant]
  14. .. [Concomitant]

REACTIONS (1)
  - BLOOD CREATININE INCREASED [None]
